FAERS Safety Report 7947213-X (Version None)
Quarter: 2011Q4

REPORT INFORMATION
  Report Type: 
  Country: None (occurrence: None)
  Receive Date: 20111129
  Receipt Date: 20111115
  Transmission Date: 20120403
  Serious: Yes (Other)
  Sender: FDA-Public Use
  Company Number: US-ASTRAZENECA-2011SE69700

PATIENT
  Sex: Female

DRUGS (3)
  1. COUMADIN [Concomitant]
  2. LEVANOX [Concomitant]
  3. SEROQUEL [Suspect]
     Indication: BIPOLAR DISORDER
     Dosage: 75-100 MG DAILY
     Route: 048
     Dates: start: 19940101

REACTIONS (7)
  - CEREBROVASCULAR ACCIDENT [None]
  - CEREBRAL THROMBOSIS [None]
  - PULMONARY THROMBOSIS [None]
  - CORONARY ARTERY THROMBOSIS [None]
  - EYE INJURY [None]
  - EYE DISORDER [None]
  - BLOOD CHOLESTEROL INCREASED [None]
